FAERS Safety Report 10653684 (Version 2)
Quarter: 2014Q4

REPORT INFORMATION
  Report Type: Spontaneous
  Country: JP (occurrence: JP)
  Receive Date: 20141216
  Receipt Date: 20141217
  Transmission Date: 20150529
  Serious: Yes (Hospitalization, Other)
  Sender: FDA-Public Use
  Company Number: JP-ROCHE-1508255

PATIENT
  Age: 65 Year
  Sex: Female

DRUGS (6)
  1. COPEGUS [Suspect]
     Active Substance: RIBAVIRIN
     Indication: CHRONIC HEPATITIS C
     Dosage: DOSAGE IS UNCERTAIN.
     Route: 048
  2. SIMEPREVIR SODIUM [Suspect]
     Active Substance: SIMEPREVIR SODIUM
     Indication: PRODUCT USED FOR UNKNOWN INDICATION
     Route: 065
     Dates: start: 20140704
  3. PEGASYS [Suspect]
     Active Substance: PEGINTERFERON ALFA-2A
     Route: 065
     Dates: start: 20140704
  4. PEGASYS [Suspect]
     Active Substance: PEGINTERFERON ALFA-2A
     Route: 048
     Dates: start: 20140719
  5. PEGASYS [Suspect]
     Active Substance: PEGINTERFERON ALFA-2A
     Indication: CHRONIC HEPATITIS C
     Dosage: DOSAGE IS UNCERTAIN.
     Route: 058
  6. COPEGUS [Suspect]
     Active Substance: RIBAVIRIN
     Route: 065
     Dates: start: 20140704

REACTIONS (4)
  - Sepsis [Unknown]
  - Neutrophil count decreased [Unknown]
  - Enteritis infectious [Unknown]
  - Disseminated intravascular coagulation [Unknown]
